FAERS Safety Report 11643475 (Version 5)
Quarter: 2018Q1

REPORT INFORMATION
  Report Type: Spontaneous
  Country: JP (occurrence: JP)
  Receive Date: 20151020
  Receipt Date: 20180216
  Transmission Date: 20180508
  Serious: Yes (Death, Life-Threatening, Other)
  Sender: FDA-Public Use
  Company Number: JP-PFIZER INC-2015353683

PATIENT
  Age: 73 Year
  Sex: Male
  Weight: 55 kg

DRUGS (6)
  1. ZYVOX [Concomitant]
     Active Substance: LINEZOLID
     Indication: PERITONITIS
     Dosage: 1200 MG, DAILY
     Route: 041
     Dates: start: 20151008
  2. ELNEOPA NO.2 [Concomitant]
     Active Substance: AMINO ACIDS\CARBOHYDRATES\ELECTROLYTES NOS\VITAMINS
     Indication: NUTRITIONAL SUPPLEMENTATION
     Dosage: 1000 ML, DAILY
     Route: 041
  3. PRODIF [Concomitant]
     Active Substance: FOSFLUCONAZOLE
     Indication: PERITONITIS
     Dosage: 200 MG, DAILY
     Route: 041
     Dates: start: 20151012
  4. MEROPEN /01250501/ [Concomitant]
     Active Substance: MEROPENEM
     Indication: PERITONITIS
     Dosage: 1 G, DAILY
     Route: 041
     Dates: start: 20151013
  5. INTRALIPOS [Concomitant]
     Active Substance: SOYBEAN OIL
     Indication: NUTRITIONAL SUPPLEMENTATION
     Dosage: 250 ML, DAILY (10%)
     Route: 041
  6. ZOSYN [Suspect]
     Active Substance: PIPERACILLIN SODIUM\TAZOBACTAM SODIUM
     Indication: PERITONITIS
     Dosage: 4.5 G, DAILY
     Route: 041
     Dates: start: 20151013, end: 20151013

REACTIONS (3)
  - Anaphylactic shock [Recovered/Resolved with Sequelae]
  - Cardiac arrest [Recovered/Resolved with Sequelae]
  - Hypoxic-ischaemic encephalopathy [Fatal]

NARRATIVE: CASE EVENT DATE: 20151013
